FAERS Safety Report 24010835 (Version 1)
Quarter: 2024Q2

REPORT INFORMATION
  Report Type: Spontaneous
  Country: US (occurrence: None)
  Receive Date: 20240624
  Receipt Date: 20240624
  Transmission Date: 20240716
  Serious: Yes (Life-Threatening, Hospitalization, Disabling)
  Sender: FDA-Public Use
  Company Number: None

PATIENT
  Age: 78 Year
  Sex: Male
  Weight: 103.5 kg

DRUGS (15)
  1. OCTREOTIDE [Suspect]
     Active Substance: OCTREOTIDE\OCTREOTIDE ACETATE
     Indication: Neuroendocrine carcinoma
     Dates: start: 20240402, end: 20240402
  2. DIGOXIN [Concomitant]
     Active Substance: DIGOXIN
  3. DILTIAZEM [Concomitant]
     Active Substance: DILTIAZEM
  4. FINASTERIDE [Concomitant]
     Active Substance: FINASTERIDE
  5. ULORIC [Concomitant]
     Active Substance: FEBUXOSTAT
  6. TRELEGY ELLIPTA [Concomitant]
     Active Substance: FLUTICASONE FUROATE\UMECLIDINIUM BROMIDE\VILANTEROL TRIFENATATE
  7. BUMETANIDE [Concomitant]
     Active Substance: BUMETANIDE
  8. LIDOCAINE [Concomitant]
     Active Substance: LIDOCAINE
  9. atorastatin [Concomitant]
  10. GLIMEPIRIDE [Concomitant]
     Active Substance: GLIMEPIRIDE
  11. letvothyroxine [Concomitant]
  12. OMEPRAZOLE [Concomitant]
     Active Substance: OMEPRAZOLE
  13. ROFLUMILAST [Concomitant]
     Active Substance: ROFLUMILAST
  14. VITAMIN D3 [Concomitant]
     Active Substance: CHOLECALCIFEROL
  15. MINERALS\VITAMINS [Concomitant]
     Active Substance: MINERALS\VITAMINS

REACTIONS (5)
  - Diarrhoea [None]
  - Nausea [None]
  - Intestinal obstruction [None]
  - Retroperitoneal haemorrhage [None]
  - Pain in extremity [None]

NARRATIVE: CASE EVENT DATE: 20240402
